FAERS Safety Report 9672126 (Version 1)
Quarter: 2013Q4

REPORT INFORMATION
  Report Type: Report from Study
  Country: BR (occurrence: BR)
  Receive Date: 20131106
  Receipt Date: 20131106
  Transmission Date: 20140711
  Serious: Yes (Other)
  Sender: FDA-Public Use
  Company Number: PHHY2013BR125916

PATIENT
  Sex: Male
  Weight: 50 kg

DRUGS (3)
  1. TRILEPTAL / GP 47680 / TRI 476B [Suspect]
     Indication: EPILEPSY
     Dosage: 1 DF, DAILY (AT NIGHT)
     Route: 048
  2. PHENYTOIN [Concomitant]
     Indication: EPILEPSY
     Dosage: 1 DF, QD (IN THE MORNING)
     Route: 048
     Dates: start: 2003
  3. GARDENAL ^AVENTIS^ [Concomitant]
     Dosage: UNK UKN, UNK

REACTIONS (2)
  - Nervous system disorder [Unknown]
  - Epilepsy [Recovered/Resolved]
